FAERS Safety Report 14350566 (Version 2)
Quarter: 2018Q1

REPORT INFORMATION
  Report Type: Spontaneous
  Country: US (occurrence: US)
  Receive Date: 20180104
  Receipt Date: 20180313
  Transmission Date: 20180509
  Serious: No
  Sender: FDA-Public Use
  Company Number: US-PFIZER INC-2018001876

PATIENT
  Age: 71 Year
  Sex: Female

DRUGS (12)
  1. COZAAR [Concomitant]
     Active Substance: LOSARTAN POTASSIUM
     Dosage: 100 MG, 1X/DAY; [FOR 30 DAYS]
     Route: 048
  2. CLONAZEPAM. [Concomitant]
     Active Substance: CLONAZEPAM
     Dosage: 1 MG, 1X/DAY;[AT BED TIME]
     Route: 048
  3. IMODIUM MULTI-SYMPTOM RELIEF [Concomitant]
     Active Substance: DIMETHICONE\LOPERAMIDE HYDROCHLORIDE
     Dosage: UNK, AS NEEDED; [LOPERAMIDE HYDROCHLORIDE 2MG, SIMETICONE 125 MG], TAKE 1-2 TABLETS ,DAILY
     Route: 048
  4. LASIX [Concomitant]
     Active Substance: FUROSEMIDE
     Dosage: 20 MG, 1X/DAY
     Route: 048
  5. LEVOTHYROXINE SODIUM. [Suspect]
     Active Substance: LEVOTHYROXINE SODIUM
     Indication: HYPOTHYROIDISM
     Dosage: 50 UG, DAILY
     Route: 048
     Dates: start: 20120516, end: 20150623
  6. ASPIRIN 81 [Concomitant]
     Active Substance: ASPIRIN
     Dosage: 81 MG, 1X/DAY
     Route: 048
  7. ATENOLOL. [Concomitant]
     Active Substance: ATENOLOL
     Dosage: 50 MG, AS NEEDED (0.5 TABLET BY ORAL ROUTE DAILY AS NEEDED)
     Route: 048
  8. AMBIEN [Concomitant]
     Active Substance: ZOLPIDEM TARTRATE
     Dosage: 10 MG, 1X/DAY; [BEDTIME]
     Route: 048
  9. BIOTIN [Concomitant]
     Active Substance: BIOTIN
     Dosage: 5 MG, DAILY
     Route: 048
  10. CLONIDINE HCL [Concomitant]
     Active Substance: CLONIDINE HYDROCHLORIDE
     Dosage: 0.1 MG, 1X/DAY
     Route: 048
  11. LORCET [Concomitant]
     Active Substance: ACETAMINOPHEN\HYDROCODONE BITARTRATE
     Indication: PAIN
     Dosage: UNK UNK, AS NEEDED; [HYDROCODONE BITARTRATE 10 MG, PARACETAMOL 650 MG]; EVERY 6 HOURS
     Route: 048
  12. VITAMIN D3 [Concomitant]
     Active Substance: CHOLECALCIFEROL
     Dosage: 2000 IU, DAILY
     Route: 048

REACTIONS (3)
  - Headache [Unknown]
  - Drug hypersensitivity [Unknown]
  - Diarrhoea [Unknown]

NARRATIVE: CASE EVENT DATE: 20150623
